FAERS Safety Report 18991507 (Version 2)
Quarter: 2022Q4

REPORT INFORMATION
  Report Type: Spontaneous
  Country: DE (occurrence: DE)
  Receive Date: 20210310
  Receipt Date: 20221030
  Transmission Date: 20230113
  Serious: Yes (Hospitalization, Other)
  Sender: FDA-Public Use
  Company Number: DE-ADRED-06194-01

PATIENT
  Age: 56 Year
  Sex: Male

DRUGS (1)
  1. TORSEMIDE [Suspect]
     Active Substance: TORSEMIDE
     Indication: Product used for unknown indication
     Dosage: 20 MILLIGRAM DAILY; 20 MG, 1-0-0-0

REACTIONS (9)
  - Dehydration [Recovering/Resolving]
  - Confusional state [Unknown]
  - General physical health deterioration [Unknown]
  - Disorientation [Unknown]
  - Restlessness [Unknown]
  - Nervousness [Unknown]
  - Renal failure [Unknown]
  - Dehydration [Unknown]
  - Electrolyte imbalance [Unknown]
